FAERS Safety Report 8394408-X (Version None)
Quarter: 2012Q2

REPORT INFORMATION
  Report Type: 
  Country: None (occurrence: None)
  Receive Date: 20120530
  Receipt Date: 20120524
  Transmission Date: 20120825
  Serious: Yes (Death, Hospitalization)
  Sender: FDA-Public Use
  Company Number: PHHY2012JP019487

PATIENT
  Age: 54 Year
  Sex: Female

DRUGS (6)
  1. NEORAL [Suspect]
     Indication: PROPHYLAXIS AGAINST GRAFT VERSUS HOST DISEASE
     Route: 048
  2. BORTEZOMIB [Concomitant]
  3. FLUDARABINE PHOSPHATE [Concomitant]
  4. DEXAMETHASONE [Concomitant]
  5. METHOTREXATE [Concomitant]
     Indication: STEM CELL TRANSPLANT
  6. MELPHALAN HYDROCHLORIDE [Concomitant]

REACTIONS (5)
  - RESPIRATORY FAILURE [None]
  - IDIOPATHIC PNEUMONIA SYNDROME [None]
  - ACUTE RESPIRATORY DISTRESS SYNDROME [None]
  - LIVER DISORDER [None]
  - THROMBOTIC MICROANGIOPATHY [None]
